FAERS Safety Report 12693934 (Version 1)
Quarter: 2016Q3

REPORT INFORMATION
  Report Type: Spontaneous
  Country: FR (occurrence: FR)
  Receive Date: 20160829
  Receipt Date: 20160829
  Transmission Date: 20161109
  Serious: Yes (Hospitalization)
  Sender: FDA-Public Use
  Company Number: FR-PFIZER INC-2016393498

PATIENT
  Age: 59 Year
  Sex: Male
  Weight: 72 kg

DRUGS (16)
  1. METHYLPREDNISOLONE MYLAN [Suspect]
     Active Substance: METHYLPREDNISOLONE
     Dosage: 117.6 MG, CYCLIC
     Route: 041
     Dates: start: 20160211
  2. METHOTREXATE BIODIM [Suspect]
     Active Substance: METHOTREXATE
     Dosage: 15 MG, CYCLIC
     Route: 037
     Dates: start: 20160211
  3. BLEOMYCINE BELLON [Suspect]
     Active Substance: BLEOMYCIN SULFATE
     Dosage: 10 MG, CYCLIC
     Route: 041
     Dates: start: 20160211
  4. DOXORUBICINE TEVA [Suspect]
     Active Substance: DOXORUBICIN
     Dosage: 150 MG, CYCLIC
     Route: 041
     Dates: start: 20160211
  5. PARACETAMOL [Suspect]
     Active Substance: ACETAMINOPHEN
     Dosage: 500 MG, CYCLIC
     Route: 041
     Dates: start: 20160211
  6. ZELITREX [Suspect]
     Active Substance: VALACYCLOVIR HYDROCHLORIDE
     Indication: PROPHYLAXIS
     Dosage: UNK
  7. LEDERFOLINE [Suspect]
     Active Substance: LEUCOVORIN CALCIUM
     Dosage: UNK
  8. ENDOXAN [Suspect]
     Active Substance: CYCLOPHOSPHAMIDE
     Dosage: 2350 MG, CYCLIC
     Route: 041
     Dates: start: 20160211
  9. POLARAMINE [Suspect]
     Active Substance: DEXCHLORPHENIRAMINE MALEATE
     Dosage: 5 MG, TWICE CYCLIC
     Route: 041
     Dates: start: 20160211
  10. MESNA EG [Suspect]
     Active Substance: MESNA
     Dosage: 784 MG, CYCLIC
     Route: 041
     Dates: start: 20160211
  11. ZYLORIC [Suspect]
     Active Substance: ALLOPURINOL
     Indication: PROPHYLAXIS
     Dosage: UNK
  12. MABTHERA [Suspect]
     Active Substance: RITUXIMAB
     Dosage: 740 MG, CYCLIC
     Route: 041
     Dates: start: 20160211
  13. ELDISINE [Suspect]
     Active Substance: VINDESINE SULFATE
     Dosage: 3.9 MG, CYCLIC
     Route: 041
     Dates: start: 20160211
  14. ONDANSETRON ACCORD [Suspect]
     Active Substance: ONDANSETRON
     Dosage: 8 MG, TWICE CYCLIC
     Route: 041
     Dates: start: 20160211
  15. UROMITEXAN [Suspect]
     Active Substance: MESNA
     Dosage: 1598 MG, TWICE CYCLIC
     Route: 048
     Dates: start: 20160211
  16. BACTRIM [Suspect]
     Active Substance: SULFAMETHOXAZOLE\TRIMETHOPRIM
     Indication: PROPHYLAXIS
     Dosage: UNK

REACTIONS (3)
  - Weight decreased [Recovered/Resolved]
  - Stomatitis [Recovered/Resolved]
  - Febrile neutropenia [Recovered/Resolved]

NARRATIVE: CASE EVENT DATE: 20160220
